FAERS Safety Report 8365947-2 (Version None)
Quarter: 2012Q2

REPORT INFORMATION
  Report Type: 
  Country: None (occurrence: None)
  Receive Date: 20120517
  Receipt Date: 20120503
  Transmission Date: 20120825
  Serious: No
  Sender: FDA-Public Use
  Company Number: US-PFIZER INC-2012117720

PATIENT
  Age: 68 Year
  Sex: Female

DRUGS (5)
  1. FOLIC ACID [Concomitant]
     Dosage: 3 PILLS PER DAY
  2. ZOFRAN [Concomitant]
     Dosage: 8 MG, UNK
  3. METHOTREXATE SODIUM [Suspect]
     Dosage: TRIED INJECTIONS BRIEFLY
  4. METHOTREXATE [Suspect]
     Dosage: 22.5 MG, WEEKLY
     Route: 048
  5. ENBREL [Suspect]
     Indication: RHEUMATOID ARTHRITIS
     Dosage: 50 MG, WEEKLY
     Dates: start: 20120424

REACTIONS (5)
  - ORAL DISCOMFORT [None]
  - VOMITING [None]
  - EATING DISORDER [None]
  - DYSGEUSIA [None]
  - NAUSEA [None]
